FAERS Safety Report 15614341 (Version 3)
Quarter: 2018Q4

REPORT INFORMATION
  Report Type: Not Available
  Country: US (occurrence: US)
  Receive Date: 20181113
  Receipt Date: 20181207
  Transmission Date: 20190205
  Serious: Yes (Hospitalization)
  Sender: FDA-Public Use
  Company Number: US-NEUROCRINE BIOSCIENCES INC.-2018NBI03240

PATIENT
  Age: 71 Year
  Sex: Male

DRUGS (13)
  1. JANUMET [Concomitant]
     Active Substance: METFORMIN HYDROCHLORIDE\SITAGLIPTIN PHOSPHATE
  2. MULTIVITAMIN ADULT [Concomitant]
  3. INGREZZA [Suspect]
     Active Substance: VALBENAZINE
     Route: 048
     Dates: start: 201810, end: 20181024
  4. DEXILANT [Concomitant]
     Active Substance: DEXLANSOPRAZOLE
  5. EFFEXOR XR [Concomitant]
     Active Substance: VENLAFAXINE HYDROCHLORIDE
  6. VITAMIN D [Concomitant]
     Active Substance: CHOLECALCIFEROL
  7. COGENTIN [Concomitant]
     Active Substance: BENZTROPINE MESYLATE
  8. INGREZZA [Suspect]
     Active Substance: VALBENAZINE
     Indication: TARDIVE DYSKINESIA
     Route: 048
     Dates: start: 201810, end: 201810
  9. LISINOPRIL. [Concomitant]
     Active Substance: LISINOPRIL
  10. FISH OIL OMEGA 3 [Concomitant]
     Active Substance: FISH OIL
  11. SIMVASTATIN. [Concomitant]
     Active Substance: SIMVASTATIN
  12. BENZTROPINE MESILATE [Concomitant]
     Active Substance: BENZTROPINE MESYLATE
  13. PRIMIDONE. [Concomitant]
     Active Substance: PRIMIDONE

REACTIONS (4)
  - Rash erythematous [Recovered/Resolved]
  - Fall [Unknown]
  - Angioedema [Recovered/Resolved]
  - Pruritus [Recovered/Resolved]

NARRATIVE: CASE EVENT DATE: 20181023
